FAERS Safety Report 24273768 (Version 1)
Quarter: 2024Q3

REPORT INFORMATION
  Report Type: Spontaneous
  Country: US (occurrence: US)
  Receive Date: 20240902
  Receipt Date: 20240902
  Transmission Date: 20241016
  Serious: No
  Sender: ASTELLAS
  Company Number: US-ASTELLAS-2024US015166

PATIENT
  Age: 64 Year
  Sex: Male

DRUGS (2)
  1. XTANDI [Interacting]
     Active Substance: ENZALUTAMIDE
     Indication: Prostate cancer
     Dosage: 160 MG, ONCE DAILY
     Route: 048
     Dates: start: 2019
  2. ELIQUIS [Interacting]
     Active Substance: APIXABAN
     Indication: Thrombosis
     Dosage: UNK UNK, UNKNOWN FREQ.
     Route: 065
     Dates: start: 2021

REACTIONS (2)
  - Anticoagulation drug level decreased [Unknown]
  - Labelled drug-drug interaction issue [Unknown]
